FAERS Safety Report 7971729-3 (Version None)
Quarter: 2011Q4

REPORT INFORMATION
  Report Type: 
  Country: None (occurrence: None)
  Receive Date: 20111212
  Receipt Date: 20111201
  Transmission Date: 20120403
  Serious: Yes (Death)
  Sender: FDA-Public Use
  Company Number: ES-CELGENEUS-144-50794-11120276

PATIENT
  Age: 40 Year
  Sex: Female

DRUGS (2)
  1. VIDAZA [Suspect]
     Dosage: 100 MILLIGRAM
     Route: 065
     Dates: start: 20080301, end: 20101201
  2. RBC TRANSFUSIONS [Concomitant]
     Route: 041
     Dates: start: 20100101, end: 20100101

REACTIONS (1)
  - DISEASE PROGRESSION [None]
